FAERS Safety Report 11529410 (Version 1)
Quarter: 2015Q3

REPORT INFORMATION
  Report Type: Spontaneous
  Country: US (occurrence: None)
  Receive Date: 20150918
  Receipt Date: 20150918
  Transmission Date: 20151125
  Serious: No
  Sender: FDA-Public Use
  Company Number: None

PATIENT
  Age: 52 Year
  Sex: Female
  Weight: 66.68 kg

DRUGS (1)
  1. CAPECITABINE 500MG MYLAN [Suspect]
     Active Substance: CAPECITABINE
     Indication: GALLBLADDER CANCER
     Dosage: 2 TABLETS BID ORAL
     Route: 048
     Dates: start: 20150724

REACTIONS (3)
  - Paraesthesia [None]
  - Burning sensation [None]
  - Hypoaesthesia [None]

NARRATIVE: CASE EVENT DATE: 20150917
